FAERS Safety Report 7691323-1 (Version None)
Quarter: 2011Q3

REPORT INFORMATION
  Report Type: 
  Country: None (occurrence: None)
  Receive Date: 20110817
  Receipt Date: 20110817
  Transmission Date: 20111222
  Serious: Yes (Hospitalization)
  Sender: FDA-Public Use
  Company Number: None

PATIENT
  Sex: Female
  Weight: 53.5244 kg

DRUGS (1)
  1. YAZ [Suspect]
     Indication: CONTRACEPTION
     Dosage: 3MG - 0.02 MG QD PO
     Route: 048
     Dates: start: 20110627, end: 20110725

REACTIONS (3)
  - NAUSEA [None]
  - VOMITING [None]
  - DEPRESSION [None]
